FAERS Safety Report 5829161-4 (Version None)
Quarter: 2008Q3

REPORT INFORMATION
  Report Type: 
  Country: None (occurrence: None)
  Receive Date: 20080731
  Receipt Date: 20080722
  Transmission Date: 20090109
  Serious: Yes (Other)
  Sender: FDA-Public Use
  Company Number: DE-ABBOTT-08P-062-0465479-00

PATIENT
  Age: 12 Month
  Sex: Male

DRUGS (3)
  1. ERGENYL ^SANOFI WINTHROP^ [Suspect]
     Indication: EPILEPSY
     Route: 048
     Dates: start: 20080701
  2. LEVODOPA [Concomitant]
     Indication: NERVOUS SYSTEM DISORDER
  3. LEVODOPA [Concomitant]
     Indication: DRUG USE FOR UNKNOWN INDICATION

REACTIONS (5)
  - APATHY [None]
  - COGNITIVE DISORDER [None]
  - CONVULSION [None]
  - GENERAL PHYSICAL HEALTH DETERIORATION [None]
  - SOMNOLENCE [None]
